FAERS Safety Report 7426903-1 (Version None)
Quarter: 2011Q2

REPORT INFORMATION
  Report Type: 
  Country: None (occurrence: None)
  Receive Date: 20110420
  Receipt Date: 20110406
  Transmission Date: 20111010
  Serious: Yes (Other)
  Sender: FDA-Public Use
  Company Number: SE-JNJFOC-20110403899

PATIENT
  Age: 45 Year
  Sex: Male

DRUGS (7)
  1. REMICADE [Suspect]
     Route: 042
  2. BETAPRED [Concomitant]
     Indication: PREMEDICATION
  3. REMICADE [Suspect]
     Route: 042
  4. REMICADE [Suspect]
     Dosage: 7 INFUSIONS ON UNSPECIFIED DATES
     Route: 042
  5. REMICADE [Suspect]
     Indication: PSORIATIC ARTHROPATHY
     Dosage: 7 INFUSIONS ON UNSPECIFIED DATES
     Route: 042
  6. METHOTREXATE [Concomitant]
     Route: 065
  7. TAVEGYL [Concomitant]
     Indication: PREMEDICATION
     Route: 048

REACTIONS (7)
  - INFUSION RELATED REACTION [None]
  - THROAT TIGHTNESS [None]
  - VERTIGO [None]
  - DRY THROAT [None]
  - ERYTHEMA [None]
  - CHEST DISCOMFORT [None]
  - NAUSEA [None]
